FAERS Safety Report 7818068-9 (Version None)
Quarter: 2011Q4

REPORT INFORMATION
  Report Type: 
  Country: None (occurrence: None)
  Receive Date: 20111017
  Receipt Date: 20111013
  Transmission Date: 20120403
  Serious: Yes (Death)
  Sender: FDA-Public Use
  Company Number: US-PFIZER INC-2011245197

PATIENT

DRUGS (5)
  1. ATROPINE SULFATE [Interacting]
     Dosage: UNK
  2. NORPROPOXYPHENE [Interacting]
     Dosage: UNK
  3. OXYMORPHONE [Interacting]
     Dosage: UNK
  4. OXYCODONE HCL [Suspect]
     Dosage: UNK
  5. PROPOXYPHENE HYDROCHLORIDE [Interacting]

REACTIONS (2)
  - TOXICITY TO VARIOUS AGENTS [None]
  - DRUG INTERACTION [None]
